FAERS Safety Report 4300149-8 (Version None)
Quarter: 2004Q1

REPORT INFORMATION
  Report Type: 
  Country: None (occurrence: None)
  Receive Date: 20040220
  Receipt Date: 20040210
  Transmission Date: 20041129
  Serious: Yes (Hospitalization)
  Sender: FDA-Public Use
  Company Number: PHHO2004JP02311

PATIENT
  Age: 77 Year
  Sex: Male
  Weight: 58 kg

DRUGS (4)
  1. LOCHOL [Suspect]
     Indication: HYPERCHOLESTEROLAEMIA
     Dosage: 20 MG/DAY
     Route: 048
     Dates: start: 20000719
  2. NIVADIL [Concomitant]
     Indication: HYPERTENSION
     Dates: start: 19960813, end: 20030905
  3. BUFFERIN [Concomitant]
     Indication: CEREBRAL INFARCTION
     Dates: start: 20000512, end: 20030905
  4. PANALDINE [Concomitant]
     Indication: CEREBRAL INFARCTION
     Dates: start: 19960813

REACTIONS (4)
  - ANGINA PECTORIS [None]
  - CORONARY ARTERY DISEASE [None]
  - CORONARY ARTERY OCCLUSION [None]
  - ELECTROCARDIOGRAM ST SEGMENT DEPRESSION [None]
